FAERS Safety Report 17513048 (Version 1)
Quarter: 2020Q1

REPORT INFORMATION
  Report Type: Spontaneous
  Country: US (occurrence: US)
  Receive Date: 20200306
  Receipt Date: 20200306
  Transmission Date: 20200409
  Serious: Yes (Other)
  Sender: FDA-Public Use
  Company Number: US-JNJFOC-20200241832

PATIENT
  Age: 50 Year
  Sex: Female
  Weight: 83.99 kg

DRUGS (1)
  1. SPRAVATO [Suspect]
     Active Substance: ESKETAMINE
     Indication: DEPRESSION
     Dosage: 7 DOSES IN ONE MONTH INSTEAD OF 8 DUE TO INSURANCE PROBLEMS
     Dates: start: 20200115

REACTIONS (11)
  - Depressed mood [Unknown]
  - Asthenia [Unknown]
  - Obsessive thoughts [Unknown]
  - Alcohol use [Unknown]
  - Increased appetite [Unknown]
  - Depression [Unknown]
  - Crying [Unknown]
  - Fear [Unknown]
  - Weight increased [Unknown]
  - Feeling abnormal [Unknown]
  - Anxiety [Unknown]

NARRATIVE: CASE EVENT DATE: 202002
